FAERS Safety Report 9510783 (Version 1)
Quarter: 2013Q3

REPORT INFORMATION
  Report Type: Spontaneous
  Country: US (occurrence: US)
  Receive Date: 20130910
  Receipt Date: 20130910
  Transmission Date: 20140515
  Serious: Yes (Hospitalization)
  Sender: FDA-Public Use
  Company Number: US-AMGEN-USASP2013062604

PATIENT
  Age: 55 Year
  Sex: Female

DRUGS (1)
  1. EPOGEN [Suspect]
     Indication: RENAL FAILURE CHRONIC
     Dosage: UNK UNIT, UNK
     Route: 065
     Dates: start: 201304

REACTIONS (2)
  - Transfusion [Unknown]
  - Haemoglobin abnormal [Unknown]
